FAERS Safety Report 9698807 (Version 2)
Quarter: 2013Q4

REPORT INFORMATION
  Report Type: Report from Study
  Country: SE (occurrence: SE)
  Receive Date: 20131120
  Receipt Date: 20131120
  Transmission Date: 20140711
  Serious: Yes (Hospitalization, Other)
  Sender: FDA-Public Use
  Company Number: SE-ABBVIE-12P-150-0966112-00

PATIENT
  Age: 35 Year
  Sex: Male

DRUGS (1)
  1. HUMIRA [Suspect]
     Indication: ANKYLOSING SPONDYLITIS
     Dates: start: 20101222

REACTIONS (15)
  - Spermatogenesis abnormal [Not Recovered/Not Resolved]
  - Seminoma [Unknown]
  - Genital cancer male [Not Recovered/Not Resolved]
  - Testis cancer [Unknown]
  - Azoospermia [Unknown]
  - Sperm concentration abnormal [Unknown]
  - Testicular pain [Unknown]
  - Testicular swelling [Unknown]
  - Groin pain [Unknown]
  - Testicular swelling [Unknown]
  - Testicular disorder [Unknown]
  - Human chorionic gonadotropin increased [Unknown]
  - Laboratory test [Unknown]
  - Testicular disorder [Unknown]
  - Infertility [Unknown]
